FAERS Safety Report 6767634-0 (Version None)
Quarter: 2010Q2

REPORT INFORMATION
  Report Type: 
  Country: None (occurrence: None)
  Receive Date: 20100610
  Receipt Date: 20100608
  Transmission Date: 20101027
  Serious: Yes (Hospitalization)
  Sender: FDA-Public Use
  Company Number: SP02870

PATIENT
  Age: 78 Year
  Sex: Male

DRUGS (13)
  1. MOVIPREP [Suspect]
     Indication: BOWEL PREPARATION
     Dosage: (1 LIT), ORAL
     Route: 048
     Dates: start: 20100328, end: 20100328
  2. PROTONIX [Concomitant]
  3. CONT. POSITIVE AIRWAY PRESSURE [Concomitant]
  4. GLUCATROL [Concomitant]
  5. ALTACE [Concomitant]
  6. ZOCOR [Concomitant]
  7. OMEPRAZOLE [Concomitant]
  8. PROSCAR [Concomitant]
  9. FLOMAX [Concomitant]
  10. LOPRESSOR` [Concomitant]
  11. ROPINOROLE [Concomitant]
  12. CYCLOBENZAPRINE [Concomitant]
  13. POTASSIUM [Concomitant]

REACTIONS (5)
  - ATRIAL FIBRILLATION [None]
  - DEHYDRATION [None]
  - RENAL FAILURE ACUTE [None]
  - SMALL INTESTINAL OBSTRUCTION [None]
  - SYNCOPE [None]
